FAERS Safety Report 9941151 (Version 1)
Quarter: 2014Q1

REPORT INFORMATION
  Report Type: Spontaneous
  Country: US (occurrence: US)
  Receive Date: 20140303
  Receipt Date: 20140303
  Transmission Date: 20141002
  Serious: No
  Sender: FDA-Public Use
  Company Number: US-ABBVIE-13P-163-1041793-00

PATIENT
  Age: 27 Year
  Sex: Female

DRUGS (4)
  1. HUMIRA [Suspect]
     Indication: PRODUCT USED FOR UNKNOWN INDICATION
     Dates: start: 20130111
  2. BIRTH CONTROL PILLS [Concomitant]
     Indication: PRODUCT USED FOR UNKNOWN INDICATION
  3. LYRICA [Concomitant]
     Indication: PRODUCT USED FOR UNKNOWN INDICATION
  4. GABAPENTIN [Concomitant]
     Indication: PRODUCT USED FOR UNKNOWN INDICATION

REACTIONS (1)
  - Nasopharyngitis [Not Recovered/Not Resolved]
